FAERS Safety Report 5046567-4 (Version None)
Quarter: 2006Q3

REPORT INFORMATION
  Report Type: 
  Country: None (occurrence: None)
  Receive Date: 20060706
  Receipt Date: 20060706
  Transmission Date: 20061208
  Serious: Yes (Life-Threatening, Hospitalization)
  Sender: FDA-Public Use
  Company Number: None

PATIENT
  Age: 87 Year
  Sex: Female
  Weight: 66 kg

DRUGS (1)
  1. TPA-ALTEPLASE- 10MG GENENTECH [Suspect]
     Indication: CEREBROVASCULAR ACCIDENT
     Dosage: 621 MGONCE IV DRIP
     Route: 041
     Dates: start: 20060703, end: 20060703

REACTIONS (2)
  - HAEMORRHAGE INTRACRANIAL [None]
  - LOSS OF CONSCIOUSNESS [None]
